FAERS Safety Report 18911761 (Version 1)
Quarter: 2021Q1

REPORT INFORMATION
  Report Type: Spontaneous
  Country: US (occurrence: US)
  Receive Date: 20210218
  Receipt Date: 20210218
  Transmission Date: 20210420
  Serious: No
  Sender: FDA-Public Use
  Company Number: US-ETON PHARMACEUTICALS, INC-2021ETO000003

PATIENT
  Age: 6 Month
  Sex: Female

DRUGS (1)
  1. ALKINDI SPRINKLE [Suspect]
     Active Substance: HYDROCORTISONE
     Indication: PRODUCT USED FOR UNKNOWN INDICATION
     Dosage: UNK
     Route: 048

REACTIONS (6)
  - Vomiting projectile [Recovered/Resolved]
  - Hypersomnia [Unknown]
  - Abnormal behaviour [Recovered/Resolved]
  - Product use complaint [Unknown]
  - Product adhesion issue [Unknown]
  - Retching [Recovered/Resolved]
